FAERS Safety Report 9970329 (Version 1)
Quarter: 2014Q1

REPORT INFORMATION
  Report Type: Spontaneous
  Country: US (occurrence: None)
  Receive Date: 20140304
  Receipt Date: 20140304
  Transmission Date: 20141002
  Serious: Yes (Death)
  Sender: FDA-Public Use
  Company Number: SYM-2014-17993

PATIENT
  Sex: Female

DRUGS (10)
  1. XENAZINE (TETRABENAZINE) (TABLETS) (TETRABENZINE) [Suspect]
     Indication: HUNTINGTON^S DISEASE
     Route: 048
     Dates: start: 20120608
  2. CALCIUM (CALCIUM) (CALCIUM) [Concomitant]
  3. COLACE (DOCUSATE SODIUM) (DOCUSATE SODIUM) [Concomitant]
  4. ENULOSE (LACTULOSE) (LACTULOSE) [Concomitant]
  5. PROLOSECC (OMEPRAZOLE) (OMEPRAZOLE) [Concomitant]
  6. HALDOL (HALOPERIDOL) (HALOPERIDOL) [Concomitant]
  7. SEROQUEL (QUETIAPINE FUMARATE) (QUETIAPINE FUMARATE) [Concomitant]
  8. SENOKOT EXTRA (SENNA ALEXANDRINA) (SENNA ALEXANDRINA) [Concomitant]
  9. LISINOPRIL (LISINOPRIL) (LISINOPRIL) [Concomitant]
  10. NORVAC (AMODIPINE BESILATE) (AMLDIPINE BESILATE) [Concomitant]

REACTIONS (1)
  - Death [None]
